FAERS Safety Report 15515842 (Version 1)
Quarter: 2018Q4

REPORT INFORMATION
  Report Type: Spontaneous
  Country: DE (occurrence: DE)
  Receive Date: 20181017
  Receipt Date: 20181017
  Transmission Date: 20190205
  Serious: Yes (Other)
  Sender: FDA-Public Use
  Company Number: DE-AUROBINDO-AUR-APL-2018-050725

PATIENT
  Age: 71 Year
  Sex: Male
  Weight: 77 kg

DRUGS (37)
  1. JAKAVI [Suspect]
     Active Substance: RUXOLITINIB
     Indication: MYELOFIBROSIS
     Dosage: 30 MILLIGRAM, DAILY, (30 MG/DAY/TWICE)
     Route: 048
     Dates: start: 20130313, end: 20130327
  2. JAKAVI [Suspect]
     Active Substance: RUXOLITINIB
     Dosage: 30 MILLIGRAM, DAILY, (30 MG/DAY/TWICE)
     Route: 048
     Dates: start: 20121004, end: 20121022
  3. JAKAVI [Suspect]
     Active Substance: RUXOLITINIB
     Dosage: UNK UNK, DAILY
     Route: 048
     Dates: start: 20140405, end: 20140423
  4. CLOBEGALEN [Concomitant]
     Indication: RASH
     Dosage: DAILY, (QD (1 TO 2 TIMES PER DAY) )
     Route: 065
     Dates: start: 20150903
  5. RAMIPRIL. [Concomitant]
     Active Substance: RAMIPRIL
     Indication: PRODUCT USED FOR UNKNOWN INDICATION
     Dosage: 7.5 MILLIGRAM, DAILY
     Route: 065
     Dates: start: 200901
  6. REVATIO [Concomitant]
     Active Substance: SILDENAFIL CITRATE
     Indication: HYPERTENSION
     Dosage: 80 MILLIGRAM, DAILY
     Route: 065
     Dates: start: 201403
  7. TORASEMIDE [Concomitant]
     Active Substance: TORSEMIDE
     Indication: HYPERTENSION
     Dosage: 10 MILLIGRAM, DAILY
     Route: 065
     Dates: start: 200901
  8. HYDROCHLOROTHIAZIDE. [Suspect]
     Active Substance: HYDROCHLOROTHIAZIDE
     Dosage: 25 MILLIGRAM, DAILY
     Route: 065
     Dates: start: 201106, end: 201301
  9. JAKAVI [Suspect]
     Active Substance: RUXOLITINIB
     Dosage: 10 MILLIGRAM, DAILY, (10 MG/DAY/TWICE)
     Route: 048
     Dates: start: 20131013, end: 20140214
  10. JAKAVI [Suspect]
     Active Substance: RUXOLITINIB
     Dosage: 10 MILLIGRAM, DAILY, (10 MG/DAY/TWICE)
     Route: 048
     Dates: start: 20121207, end: 20130313
  11. JAKAVI [Suspect]
     Active Substance: RUXOLITINIB
     Dosage: UNK UNK, DAILY
     Route: 048
     Dates: start: 20140308, end: 20140404
  12. DERMATOP [Concomitant]
     Active Substance: PREDNICARBATE
     Indication: DERMATOSIS
     Dosage: DAILY, (1 TO 2 TIMES PER DAY)
     Route: 065
     Dates: start: 20151014
  13. METOPROLOL. [Concomitant]
     Active Substance: METOPROLOL
     Indication: HYPERTENSION
     Dosage: 142.5 MILLIGRAM
     Route: 065
     Dates: start: 20150212
  14. JAKAVI [Suspect]
     Active Substance: RUXOLITINIB
     Dosage: 5 MILLIGRAM, DAILY, (5 MG/DAY/TWICE)
     Route: 048
     Dates: start: 20150128
  15. ALLOPURINOL. [Concomitant]
     Active Substance: ALLOPURINOL
     Indication: ARTHRITIS
     Dosage: 150 MILLIGRAM, DAILY
     Route: 065
     Dates: start: 199301
  16. MIRTAZAPINE. [Concomitant]
     Active Substance: MIRTAZAPINE
     Indication: RESTLESSNESS
     Dosage: 15 MILLIGRAM, (15 MG, PRN (AS NEEDED))
     Route: 065
     Dates: start: 200502, end: 20150212
  17. RESONIUM [Concomitant]
     Active Substance: SODIUM POLYSTYRENE SULFONATE
     Indication: HYPERKALAEMIA
     Dosage: UNK
     Route: 065
     Dates: start: 20150513, end: 20150526
  18. SODIUM CHLORIDE. [Concomitant]
     Active Substance: SODIUM CHLORIDE
     Indication: PRODUCT USED FOR UNKNOWN INDICATION
     Dosage: 2000 MILLILITER
     Route: 065
     Dates: start: 20131009, end: 20131010
  19. TORASEMIDE [Concomitant]
     Active Substance: TORSEMIDE
     Dosage: 10 MILLIGRAM
     Route: 065
     Dates: start: 20131009
  20. LORAZEPAM. [Concomitant]
     Active Substance: LORAZEPAM
     Indication: RESTLESSNESS
     Dosage: 2 MILLIGRAM, DAILY
     Route: 065
     Dates: start: 200502
  21. MAGNESIOCARD [Concomitant]
     Active Substance: MAGNESIUM ASPARTATE HYDROCHLORIDE
     Indication: MUSCLE SPASMS
     Dosage: 2.5 MILLIMOLE, DAILY
     Route: 065
     Dates: start: 20130703
  22. NEORECORMON [Concomitant]
     Active Substance: ERYTHROPOIETIN
     Indication: ANAEMIA
     Dosage: 30000 INTERNATIONAL UNIT, EVERY WEEK
     Route: 065
     Dates: start: 20121023
  23. JAKAVI [Suspect]
     Active Substance: RUXOLITINIB
     Dosage: UNK UNK, DAILY
     Route: 048
     Dates: start: 20140214, end: 20140307
  24. FOLIC ACID. [Concomitant]
     Active Substance: FOLIC ACID
     Indication: ANAEMIA
     Dosage: 5 MILLIGRAM, DAILY
     Route: 065
     Dates: start: 20141127
  25. HYDROCHLOROTHIAZIDE. [Suspect]
     Active Substance: HYDROCHLOROTHIAZIDE
     Indication: PRODUCT USED FOR UNKNOWN INDICATION
     Dosage: 12.5 MILLIGRAM
     Route: 065
     Dates: start: 20131012
  26. JAKAVI [Suspect]
     Active Substance: RUXOLITINIB
     Dosage: 20 MILLIGRAM, DAILY
     Route: 048
     Dates: start: 20121113, end: 20121206
  27. JAKAVI [Suspect]
     Active Substance: RUXOLITINIB
     Dosage: 5 MILLIGRAM, DAILY
     Route: 048
     Dates: start: 20140424, end: 20141126
  28. JAKAVI [Suspect]
     Active Substance: RUXOLITINIB
     Dosage: 10 MILLIGRAM, DAILY, (10 MG/DAY/TWICE)
     Route: 048
     Dates: start: 20121023, end: 20121113
  29. GLUCOSE [Concomitant]
     Active Substance: DEXTROSE
     Indication: PRODUCT USED FOR UNKNOWN INDICATION
     Dosage: 500 MILLILITER
     Route: 065
     Dates: start: 20131009, end: 20131010
  30. METOPROLOL. [Concomitant]
     Active Substance: METOPROLOL
     Dosage: 47.5 MILLIGRAM, DAILY
     Route: 065
     Dates: start: 201001, end: 20150211
  31. PANTOZOL [Concomitant]
     Active Substance: PANTOPRAZOLE SODIUM
     Indication: PRODUCT USED FOR UNKNOWN INDICATION
     Dosage: 40 MILLIGRAM, DAILY
     Route: 065
     Dates: start: 20131013
  32. PANTOZOL [Concomitant]
     Active Substance: PANTOPRAZOLE SODIUM
     Dosage: 80 MILLIGRAM, DAILY
     Route: 065
     Dates: start: 201001
  33. TORASEMIDE [Concomitant]
     Active Substance: TORSEMIDE
     Dosage: 5 MILLIGRAM
     Route: 065
     Dates: start: 20130510
  34. JAKAVI [Suspect]
     Active Substance: RUXOLITINIB
     Dosage: 10 MILLIGRAM, DAILY, (10 MG/DAY/TWICE)
     Route: 048
     Dates: start: 20130328, end: 20131009
  35. IMODIUM [Concomitant]
     Active Substance: LOPERAMIDE HYDROCHLORIDE
     Indication: DIARRHOEA
     Dosage: 8 MILLIGRAM, DAILY, (2 MG, QID (AS NEEDED))
     Route: 065
     Dates: start: 20141009
  36. NEORECORMON [Concomitant]
     Active Substance: ERYTHROPOIETIN
     Dosage: 30000 INTERNATIONAL UNIT, EVERY WEEK
     Route: 065
     Dates: start: 20100503, end: 20121002
  37. REVATIO [Concomitant]
     Active Substance: SILDENAFIL CITRATE
     Dosage: 80 MILLIGRAM, DAILY
     Route: 065
     Dates: start: 200901

REACTIONS (8)
  - Dyspnoea exertional [Not Recovered/Not Resolved]
  - Rectal haemorrhage [Recovered/Resolved]
  - Thrombocytopenia [Not Recovered/Not Resolved]
  - Splenomegaly [Unknown]
  - Leukopenia [Not Recovered/Not Resolved]
  - Haemoglobin decreased [Not Recovered/Not Resolved]
  - Anaemia [Not Recovered/Not Resolved]
  - Iron overload [Not Recovered/Not Resolved]

NARRATIVE: CASE EVENT DATE: 20121018
